FAERS Safety Report 9387423 (Version 1)
Quarter: 2013Q3

REPORT INFORMATION
  Report Type: Spontaneous
  Country: US (occurrence: None)
  Receive Date: 20130703
  Receipt Date: 20130703
  Transmission Date: 20140515
  Serious: No
  Sender: FDA-Public Use
  Company Number: None

PATIENT
  Age: 66 Year
  Sex: Male
  Weight: 81.19 kg

DRUGS (1)
  1. ATORVASTATIN [Suspect]
     Indication: TYPE V HYPERLIPIDAEMIA
     Dosage: 1/2 TAB,PO, QD.
     Route: 048
     Dates: start: 201303, end: 201304

REACTIONS (1)
  - Myalgia [None]
